FAERS Safety Report 7095893-6 (Version None)
Quarter: 2010Q4

REPORT INFORMATION
  Report Type: 
  Country: None (occurrence: None)
  Receive Date: 20101111
  Receipt Date: 20101102
  Transmission Date: 20110411
  Serious: Yes (Hospitalization)
  Sender: FDA-Public Use
  Company Number: US-ASTRAZENECA-2010SE51916

PATIENT
  Age: 62 Year
  Sex: Female

DRUGS (9)
  1. CRESTOR [Suspect]
     Indication: HYPERCHOLESTEROLAEMIA
     Route: 048
     Dates: start: 20050101
  2. OMEPRAZOLE [Concomitant]
  3. METOPROLOL [Concomitant]
  4. DICLOFENAC SODIUM [Concomitant]
  5. COLCHICINE [Concomitant]
  6. FEXOFENADINE HCL [Concomitant]
  7. GLUCOSAMINE [Concomitant]
  8. ASPIRIN [Concomitant]
  9. FOSAMAX [Concomitant]

REACTIONS (5)
  - COELIAC DISEASE [None]
  - GASTROINTESTINAL ULCER HAEMORRHAGE [None]
  - GOUT [None]
  - IRRITABLE BOWEL SYNDROME [None]
  - STENT PLACEMENT [None]
